FAERS Safety Report 9418931 (Version 2)
Quarter: 2013Q3

REPORT INFORMATION
  Report Type: Spontaneous
  Country: BR (occurrence: BR)
  Receive Date: 20130725
  Receipt Date: 20130830
  Transmission Date: 20140515
  Serious: Yes (Hospitalization)
  Sender: FDA-Public Use
  Company Number: BR-ELI_LILLY_AND_COMPANY-BR201307004574

PATIENT
  Age: 60 Year
  Sex: Female
  Weight: 45 kg

DRUGS (6)
  1. FORTEO [Suspect]
     Indication: OSTEOPOROSIS
     Dosage: 20 UG, QD
     Route: 058
     Dates: end: 20130802
  2. CALCIUM [Concomitant]
     Indication: OSTEOPOROSIS
     Dosage: 1 G, BID
     Route: 065
  3. VITAMIN D [Concomitant]
     Indication: OSTEOPOROSIS
     Dosage: 800 IU, BID
     Route: 065
  4. OMEPRAZOL [Concomitant]
     Indication: PROPHYLAXIS
     Dosage: 20 MG, EACH MORNING
     Route: 065
     Dates: start: 201304
  5. PURAN T4 [Concomitant]
     Indication: HYPOTHYROIDISM
     Dosage: 75 UG, UNK
     Route: 065
  6. VITAMIN B12 [Concomitant]
     Indication: ANAEMIA
     Dosage: UNK

REACTIONS (10)
  - Gastroenteritis [Recovered/Resolved]
  - Urinary tract infection [Recovered/Resolved]
  - Poisoning [Recovered/Resolved]
  - Skin injury [Recovered/Resolved]
  - Skin haemorrhage [Recovered/Resolved]
  - Pain [Recovered/Resolved]
  - Loss of consciousness [Recovered/Resolved]
  - Haemorrhage [Unknown]
  - Urticaria [Recovered/Resolved]
  - Hypersensitivity [Recovered/Resolved]
